FAERS Safety Report 7726633-2 (Version None)
Quarter: 2011Q3

REPORT INFORMATION
  Report Type: 
  Country: None (occurrence: None)
  Receive Date: 20110902
  Receipt Date: 20110825
  Transmission Date: 20111222
  Serious: Yes (Other)
  Sender: FDA-Public Use
  Company Number: PHEH2011US02561

PATIENT
  Sex: Female

DRUGS (1)
  1. RECLAST [Suspect]
     Dosage: 5 MG/ 100 ML
     Route: 042
     Dates: start: 20110609

REACTIONS (2)
  - PATELLA FRACTURE [None]
  - FOOT FRACTURE [None]
